FAERS Safety Report 20635654 (Version 1)
Quarter: 2022Q1

REPORT INFORMATION
  Report Type: Spontaneous
  Country: US (occurrence: None)
  Receive Date: 20220324
  Receipt Date: 20220324
  Transmission Date: 20220423
  Serious: No
  Sender: FDA-Public Use
  Company Number: None

PATIENT
  Age: 28 Year
  Sex: Male

DRUGS (1)
  1. NUCALA [Suspect]
     Active Substance: MEPOLIZUMAB
     Dosage: 100MG  OTHER ORAL?
     Route: 048
     Dates: start: 20210906

REACTIONS (1)
  - Total lung capacity decreased [None]

NARRATIVE: CASE EVENT DATE: 20210906
